FAERS Safety Report 15075053 (Version 2)
Quarter: 2023Q4

REPORT INFORMATION
  Report Type: Spontaneous
  Country: US (occurrence: US)
  Receive Date: 20180627
  Receipt Date: 20231109
  Transmission Date: 20240109
  Serious: No
  Sender: FDA-Public Use
  Company Number: US-SAOL THERAPEUTICS-2017SAO01490

PATIENT
  Sex: Male
  Weight: 113.24 kg

DRUGS (22)
  1. BACLOFEN [Suspect]
     Active Substance: BACLOFEN
     Indication: Muscle spasticity
     Dosage: UNK
     Route: 037
  2. BACLOFEN [Suspect]
     Active Substance: BACLOFEN
     Indication: Spinal cord injury
  3. BACLOFEN [Suspect]
     Active Substance: BACLOFEN
     Indication: Muscle spasticity
     Dosage: 110.8 ?G, \DAY
     Route: 037
  4. BACLOFEN [Suspect]
     Active Substance: BACLOFEN
     Indication: Spinal cord injury
  5. MORPHINE [Suspect]
     Active Substance: MORPHINE
     Dosage: UNK
     Route: 037
  6. BACLOFEN [Suspect]
     Active Substance: BACLOFEN
     Dosage: 214.90 ?G, \DAY
     Route: 037
     Dates: start: 2007
  7. BACLOFEN [Suspect]
     Active Substance: BACLOFEN
     Dosage: 224.90 ?G, \DAY
     Route: 037
     Dates: start: 2007
  8. MORPHINE [Suspect]
     Active Substance: MORPHINE
     Dosage: 0.537 MG, \DAY
     Route: 037
  9. MORPHINE [Suspect]
     Active Substance: MORPHINE
     Dosage: 0.562 MG, \DAY
     Route: 037
  10. OXYBUTYNIN [Concomitant]
     Active Substance: OXYBUTYNIN
  11. PRAVASTATIN [Concomitant]
     Active Substance: PRAVASTATIN
  12. OMEPRAZOLE [Concomitant]
     Active Substance: OMEPRAZOLE
  13. POLYETHYLENE GLYCOL [Concomitant]
     Active Substance: POLYETHYLENE GLYCOL
  14. FUROSEMIDE [Concomitant]
     Active Substance: FUROSEMIDE
  15. TAMSULOSIN [Concomitant]
     Active Substance: TAMSULOSIN
  16. ACYCLOVIR [Concomitant]
     Active Substance: ACYCLOVIR
  17. GABAPENTIN [Concomitant]
     Active Substance: GABAPENTIN
  18. BUSPIRONE [Concomitant]
     Active Substance: BUSPIRONE HYDROCHLORIDE
  19. GEMFIBROZIL [Concomitant]
     Active Substance: GEMFIBROZIL
  20. PROMETHAZINE [Concomitant]
     Active Substance: PROMETHAZINE HYDROCHLORIDE
  21. CELEBREX [Concomitant]
     Active Substance: CELECOXIB
  22. TIZANIDINE [Concomitant]
     Active Substance: TIZANIDINE

REACTIONS (5)
  - Muscle spasms [Not Recovered/Not Resolved]
  - Pain [Not Recovered/Not Resolved]
  - Device failure [Unknown]
  - Muscle spasticity [Not Recovered/Not Resolved]
  - Arthropathy [Unknown]

NARRATIVE: CASE EVENT DATE: 20170101
